FAERS Safety Report 8697643 (Version 2)
Quarter: 2012Q4

REPORT INFORMATION
  Report Type: 
  Country: US (occurrence: US)
  Receive Date: 20120801
  Receipt Date: 20121008
  Transmission Date: 20130627
  Serious: No
  Sender: FDA-Public Use
  Company Number: US-ASTRAZENECA-2012SE51187

PATIENT
  Age: 42 Year
  Sex: Female

DRUGS (3)
  1. CRESTOR [Suspect]
     Route: 048
  2. RESCUE INHALER [Concomitant]
  3. SINGULAIR [Concomitant]

REACTIONS (1)
  - Asthma [Unknown]
